FAERS Safety Report 16793917 (Version 3)
Quarter: 2022Q1

REPORT INFORMATION
  Report Type: Spontaneous
  Country: US (occurrence: US)
  Receive Date: 20190911
  Receipt Date: 20220112
  Transmission Date: 20220424
  Serious: Yes (Other)
  Sender: FDA-Public Use
  Company Number: US-AMGEN-USASP2019145495

PATIENT
  Age: 26 Year
  Sex: Male

DRUGS (5)
  1. FILGRASTIM [Suspect]
     Active Substance: FILGRASTIM
     Indication: Aplastic anaemia
     Dosage: DAILY FILGRASTIM (UP TO 480 MCG), QD
     Route: 065
     Dates: start: 2019
  2. ELTROMBOPAG [Concomitant]
     Active Substance: ELTROMBOPAG
     Indication: Aplastic anaemia
     Dosage: UNK
     Dates: start: 2019
  3. CYCLOSPORINE [Concomitant]
     Active Substance: CYCLOSPORINE
     Indication: Aplastic anaemia
     Dosage: UNK
     Dates: start: 2019
  4. IMATINIB [Concomitant]
     Active Substance: IMATINIB
     Indication: Aplastic anaemia
     Dosage: 100 MILLIGRAM, QD
     Dates: start: 2019
  5. IMATINIB [Concomitant]
     Active Substance: IMATINIB
     Dosage: 600 MILLIGRAM, QD
     Dates: start: 2019

REACTIONS (5)
  - Chronic graft versus host disease [Unknown]
  - Acute graft versus host disease [Unknown]
  - Chronic myeloid leukaemia [Unknown]
  - Drug ineffective for unapproved indication [Unknown]
  - Off label use [Unknown]

NARRATIVE: CASE EVENT DATE: 20190101
